FAERS Safety Report 9377937 (Version 1)
Quarter: 2013Q3

REPORT INFORMATION
  Report Type: Report from Study
  Country: FR (occurrence: FR)
  Receive Date: 20130701
  Receipt Date: 20130701
  Transmission Date: 20140515
  Serious: Yes (Hospitalization)
  Sender: FDA-Public Use
  Company Number: FR-BRISTOL-MYERS SQUIBB COMPANY-19038645

PATIENT
  Age: 25 Year
  Sex: Female

DRUGS (14)
  1. ETOPOPHOS FOR INJ 100 MG [Suspect]
     Indication: HODGKIN^S DISEASE
     Route: 042
     Dates: start: 20130515, end: 20130517
  2. UROMITEXAN [Suspect]
     Indication: HODGKIN^S DISEASE
     Dosage: 1G/10ML
     Route: 042
     Dates: start: 20130515
  3. ENDOXAN-ASTA [Suspect]
     Indication: HODGKIN^S DISEASE
     Route: 042
     Dates: start: 20130515
  4. DOXORUBICINE [Suspect]
     Indication: HODGKIN^S DISEASE
     Route: 042
     Dates: start: 20130515
  5. NATULAN [Suspect]
     Indication: HODGKIN^S DISEASE
     Route: 048
     Dates: start: 20130515, end: 20130517
  6. CORTANCYL [Suspect]
     Indication: HODGKIN^S DISEASE
     Dosage: 66MG
     Route: 048
     Dates: start: 20130515, end: 20130517
  7. ATARAX [Suspect]
     Indication: INSOMNIA
     Route: 048
     Dates: start: 20130514, end: 20130522
  8. ZELITREX [Suspect]
     Route: 048
     Dates: start: 20130517, end: 20130522
  9. BACTRIM FORTE [Suspect]
     Route: 048
     Dates: start: 20130517, end: 20130522
  10. CALCIUM FOLINATE [Suspect]
     Route: 048
     Dates: start: 20130517, end: 20130522
  11. METOCLOPRAMIDE [Suspect]
     Indication: NAUSEA
     Dates: start: 20130517, end: 20130522
  12. TRAMADOL HCL [Suspect]
     Dates: start: 20130517, end: 20130522
  13. ETHINYLESTRADIOL [Suspect]
     Route: 048
     Dates: start: 2012, end: 20130525
  14. LEVONORGESTREL [Suspect]
     Dates: start: 2012, end: 20130525

REACTIONS (1)
  - Mixed liver injury [Recovered/Resolved]
